FAERS Safety Report 4809427-7 (Version None)
Quarter: 2005Q4

REPORT INFORMATION
  Report Type: 
  Country: None (occurrence: None)
  Receive Date: 20051019
  Receipt Date: 20051005
  Transmission Date: 20060501
  Serious: Yes (Other)
  Sender: FDA-Public Use
  Company Number: 200509483

PATIENT
  Age: 10 Year
  Sex: Male

DRUGS (1)
  1. IMMUNE GLOBULIN INTRAVENOUS (HUMAN) [Suspect]
     Indication: OPSOCLONUS MYOCLONUS
     Dosage: IV
     Route: 042
     Dates: start: 20030101

REACTIONS (4)
  - HEPATITIS B CORE ANTIGEN POSITIVE [None]
  - HEPATITIS B E ANTIGEN POSITIVE [None]
  - HEPATITIS B SURFACE ANTIGEN POSITIVE [None]
  - VIRAL HEPATITIS CARRIER [None]
